FAERS Safety Report 7116685-5 (Version None)
Quarter: 2010Q4

REPORT INFORMATION
  Report Type: 
  Country: None (occurrence: None)
  Receive Date: 20101122
  Receipt Date: 20101116
  Transmission Date: 20110411
  Serious: Yes (Death)
  Sender: FDA-Public Use
  Company Number: B0684667A

PATIENT
  Sex: Female

DRUGS (29)
  1. CLAMOXYL IV [Suspect]
     Dosage: 1G TWICE PER DAY
     Route: 042
     Dates: start: 20100831, end: 20101006
  2. CLAVENTIN [Suspect]
     Dosage: 3G SINGLE DOSE
     Route: 042
     Dates: start: 20101007, end: 20101007
  3. ROCEPHIN [Suspect]
     Dosage: 2G TWICE PER DAY
     Route: 042
     Dates: start: 20100925, end: 20101006
  4. TIENAM [Suspect]
     Route: 042
     Dates: start: 20100903
  5. AMIKIN [Concomitant]
     Route: 065
     Dates: start: 20100903, end: 20101015
  6. VANCOMYCIN [Concomitant]
     Route: 065
     Dates: start: 20100909, end: 20101015
  7. CORTICOTHERAPY [Concomitant]
     Route: 065
  8. BACTRIM [Concomitant]
     Dosage: 800MG PER DAY
     Route: 065
     Dates: end: 20101015
  9. LASIX [Concomitant]
     Dosage: 40MG PER DAY
     Route: 065
     Dates: end: 20101015
  10. FOLINATE [Concomitant]
     Route: 065
     Dates: end: 20101015
  11. ACUPAN [Concomitant]
     Route: 065
     Dates: end: 20101015
  12. PERFALGAN [Concomitant]
     Route: 065
     Dates: end: 20101015
  13. MORPHINE [Concomitant]
     Route: 065
     Dates: end: 20101015
  14. CIFLOX [Concomitant]
     Dosage: 400MG TWICE PER DAY
     Route: 065
     Dates: start: 20100612, end: 20100926
  15. SEROPLEX [Concomitant]
     Dosage: 10MG PER DAY
     Route: 065
     Dates: end: 20101003
  16. CLARITHROMYCIN [Concomitant]
     Dosage: 500MG PER DAY
     Route: 065
     Dates: end: 20101015
  17. ANSATIPINE [Concomitant]
     Dosage: 300MG PER DAY
     Route: 065
     Dates: end: 20101015
  18. LEXOMIL [Concomitant]
     Route: 065
     Dates: end: 20101015
  19. ALDACTONE [Concomitant]
     Dosage: 25MG PER DAY
     Route: 065
     Dates: end: 20101015
  20. TRANXENE [Concomitant]
     Route: 065
     Dates: end: 20101013
  21. FORLAX [Concomitant]
     Dosage: 1SAC TWICE PER DAY
     Route: 065
     Dates: end: 20101015
  22. ATARAX [Concomitant]
     Route: 065
     Dates: end: 20101013
  23. MYAMBUTOL [Concomitant]
     Dosage: 60MG PER DAY
     Route: 065
     Dates: start: 20100927, end: 20101015
  24. ERYTHROMYCIN [Concomitant]
     Dosage: 70MG PER DAY
     Route: 065
     Dates: start: 20101001, end: 20101015
  25. NEXIUM [Concomitant]
     Route: 065
     Dates: start: 20101005, end: 20101010
  26. LANSOPRAZOLE [Concomitant]
     Route: 065
     Dates: end: 20101015
  27. HEPARIN [Concomitant]
     Route: 065
  28. TAZOCILLINE [Concomitant]
     Dates: start: 20100612
  29. VANCOMYCIN HCL [Concomitant]
     Route: 065
     Dates: start: 20100612

REACTIONS (15)
  - BRADYCARDIA [None]
  - COMA [None]
  - CONSCIOUSNESS FLUCTUATING [None]
  - DISTURBANCE IN ATTENTION [None]
  - HAEMOPTYSIS [None]
  - HALLUCINATION [None]
  - HYPOTONIA [None]
  - HYPOXIA [None]
  - OVERDOSE [None]
  - OXYGEN SATURATION DECREASED [None]
  - REFLEXES ABNORMAL [None]
  - RENAL FAILURE [None]
  - RESPIRATORY DISORDER [None]
  - SHOCK [None]
  - TREMOR [None]
